FAERS Safety Report 10543812 (Version 1)
Quarter: 2014Q4

REPORT INFORMATION
  Report Type: Other
  Country: GB (occurrence: GB)
  Receive Date: 20141027
  Receipt Date: 20141027
  Transmission Date: 20150529
  Serious: Yes (Hospitalization)
  Sender: FDA-Public Use
  Company Number: GB-MYLANLABS-2014M1007405

PATIENT

DRUGS (12)
  1. AVASTIN [Concomitant]
     Active Substance: BEVACIZUMAB
     Dosage: 495 MG, UNK
     Route: 042
     Dates: start: 20121009
  2. AVASTIN [Concomitant]
     Active Substance: BEVACIZUMAB
     Indication: GASTRIC CANCER
     Dosage: UNK
     Route: 042
     Dates: start: 20120823
  3. CISPLATIN. [Suspect]
     Active Substance: CISPLATIN
     Dosage: 106 MG, UNK
     Route: 042
     Dates: start: 20121009
  4. XELODA [Suspect]
     Active Substance: CAPECITABINE
     Dosage: 31500 MG, UNK
     Route: 048
     Dates: start: 20121009
  5. LANSOPRAZOLE. [Concomitant]
     Active Substance: LANSOPRAZOLE
     Dosage: 200 MG, UNK
     Route: 048
  6. EPIRUBICIN [Suspect]
     Active Substance: EPIRUBICIN
     Indication: OESOPHAGEAL ADENOCARCINOMA
     Dosage: UNK
     Route: 042
     Dates: start: 20120823
  7. EPIRUBICIN [Suspect]
     Active Substance: EPIRUBICIN
     Dosage: 66 MG, CYCLE
     Route: 042
     Dates: start: 20120910
  8. EPIRUBICIN [Suspect]
     Active Substance: EPIRUBICIN
     Dosage: 66 MG, UNK
     Route: 042
     Dates: start: 20121009
  9. CISPLATIN. [Suspect]
     Active Substance: CISPLATIN
     Indication: OESOPHAGEAL ADENOCARCINOMA
     Dosage: UNK
     Route: 042
     Dates: start: 20120823
  10. CISPLATIN. [Suspect]
     Active Substance: CISPLATIN
     Dosage: 106 MG, CYCLE
     Route: 042
     Dates: start: 20120910
  11. XELODA [Suspect]
     Active Substance: CAPECITABINE
     Indication: OESOPHAGEAL ADENOCARCINOMA
     Dosage: CYCLE NUMBER C6
     Route: 048
     Dates: start: 20120823
  12. DOXYCYCLINE. [Concomitant]
     Active Substance: DOXYCYCLINE
     Dosage: 30 MG, UNK
     Route: 048

REACTIONS (3)
  - Haematemesis [Recovered/Resolved]
  - Lower respiratory tract infection [Recovered/Resolved]
  - Nausea [Recovered/Resolved]

NARRATIVE: CASE EVENT DATE: 20121018
